FAERS Safety Report 6279379-4 (Version None)
Quarter: 2009Q3

REPORT INFORMATION
  Report Type: 
  Country: None (occurrence: None)
  Receive Date: 20090721
  Receipt Date: 20090708
  Transmission Date: 20100115
  Serious: Yes (Other)
  Sender: FDA-Public Use
  Company Number: 220002M09CHN

PATIENT

DRUGS (1)
  1. SAIZEN [Suspect]
     Dates: start: 20060101, end: 20080101

REACTIONS (2)
  - NEOPLASM RECURRENCE [None]
  - THYROID ADENOMA [None]
